FAERS Safety Report 20170558 (Version 2)
Quarter: 2022Q1

REPORT INFORMATION
  Report Type: Spontaneous
  Country: US (occurrence: US)
  Receive Date: 20211210
  Receipt Date: 20220310
  Transmission Date: 20220424
  Serious: Yes (Other)
  Sender: FDA-Public Use
  Company Number: US-JNJFOC-20211212855

PATIENT
  Age: 72 Year
  Sex: Female

DRUGS (2)
  1. SIMPONI ARIA [Suspect]
     Active Substance: GOLIMUMAB
     Indication: Psoriatic arthropathy
     Route: 042
     Dates: start: 2019, end: 202104
  2. COSENTYX [Suspect]
     Active Substance: SECUKINUMAB
     Route: 065

REACTIONS (4)
  - Psoriatic arthropathy [Unknown]
  - Hypoacusis [Unknown]
  - Psoriasis [Recovered/Resolved]
  - Product dose omission issue [Unknown]
